FAERS Safety Report 7687668-1 (Version None)
Quarter: 2011Q3

REPORT INFORMATION
  Report Type: 
  Country: None (occurrence: None)
  Receive Date: 20110817
  Receipt Date: 20110805
  Transmission Date: 20111222
  Serious: Yes (Hospitalization)
  Sender: FDA-Public Use
  Company Number: US-BAYER-2011-019820

PATIENT
  Age: 47 Year
  Sex: Female
  Weight: 96.599 kg

DRUGS (7)
  1. SYNTHROID [Concomitant]
     Indication: BLOOD THYROID STIMULATING HORMONE INCREASED
  2. YAZ [Suspect]
     Dosage: UNK
     Dates: start: 20080101, end: 20090301
  3. FLUOCINONIDE [Concomitant]
     Dosage: 0.05 %, UNK
     Dates: start: 20090216
  4. METHYLPREDNISOLONE [Concomitant]
  5. CALCIUM WITH VITAMIN D [Concomitant]
  6. ASPIRIN [Concomitant]
  7. AUGMENTIN '125' [Concomitant]

REACTIONS (7)
  - BRAIN INJURY [None]
  - GENERAL PHYSICAL HEALTH DETERIORATION [None]
  - INJURY [None]
  - PAIN [None]
  - UNEVALUABLE EVENT [None]
  - ANXIETY [None]
  - CEREBROVASCULAR ACCIDENT [None]
